FAERS Safety Report 24158660 (Version 1)
Quarter: 2024Q3

REPORT INFORMATION
  Report Type: Spontaneous
  Country: US (occurrence: US)
  Receive Date: 20240731
  Receipt Date: 20240731
  Transmission Date: 20241017
  Serious: No
  Sender: ROCHE
  Company Number: US-ROCHE-10000034496

PATIENT

DRUGS (2)
  1. HERCEPTIN [Suspect]
     Active Substance: TRASTUZUMAB
     Indication: Hepatocellular carcinoma
     Route: 065
     Dates: start: 202305
  2. PERJETA [Suspect]
     Active Substance: PERTUZUMAB
     Indication: Hepatocellular carcinoma
     Route: 065

REACTIONS (5)
  - Hypersensitivity [Unknown]
  - Chest pain [Unknown]
  - Heart rate increased [Unknown]
  - Dyspnoea [Unknown]
  - Cardiac dysfunction [Unknown]
